FAERS Safety Report 19900269 (Version 1)
Quarter: 2021Q3

REPORT INFORMATION
  Report Type: Spontaneous
  Country: US (occurrence: US)
  Receive Date: 20210930
  Receipt Date: 20210930
  Transmission Date: 20211014
  Serious: Yes (Hospitalization)
  Sender: FDA-Public Use
  Company Number: None

PATIENT
  Age: 79 Year
  Sex: Male
  Weight: 99.3 kg

DRUGS (14)
  1. MULTIVITAMIN [Concomitant]
     Active Substance: VITAMINS
  2. METRONIDAZOLE. [Concomitant]
     Active Substance: METRONIDAZOLE
  3. COLACE [Concomitant]
     Active Substance: DOCUSATE SODIUM
  4. CLOPIDOGREL [Concomitant]
     Active Substance: CLOPIDOGREL BISULFATE
  5. FOLIC ACID. [Concomitant]
     Active Substance: FOLIC ACID
  6. METAMUCIL [Concomitant]
     Active Substance: PLANTAGO SEED
  7. XARELTO [Concomitant]
     Active Substance: RIVAROXABAN
  8. CASODEX [Concomitant]
     Active Substance: BICALUTAMIDE
  9. ERLEADA [Suspect]
     Active Substance: APALUTAMIDE
     Indication: PROSTATE CANCER
     Route: 048
     Dates: start: 20210305
  10. AMLODIPINE [Concomitant]
     Active Substance: AMLODIPINE BESYLATE
  11. CALCIM+D [Concomitant]
  12. LUPRON [Concomitant]
     Active Substance: LEUPROLIDE ACETATE
  13. CIPROFLOXACIN. [Concomitant]
     Active Substance: CIPROFLOXACIN
  14. METOPROLOL?HCTZ [Concomitant]

REACTIONS (1)
  - Cerebrovascular accident [None]
